FAERS Safety Report 12928241 (Version 1)
Quarter: 2016Q4

REPORT INFORMATION
  Report Type: Spontaneous
  Country: IT (occurrence: IT)
  Receive Date: 20161110
  Receipt Date: 20161110
  Transmission Date: 20170207
  Serious: Yes (Hospitalization)
  Sender: FDA-Public Use
  Company Number: IT-SUN PHARMACEUTICAL INDUSTRIES LTD-2016RR-127037

PATIENT
  Age: 86 Year

DRUGS (6)
  1. LOSAPREX 50 MG [Concomitant]
     Indication: HYPERTENSION
     Route: 065
  2. SIVASTIN  20 MG [Concomitant]
     Indication: HYPERCHOLESTEROLAEMIA
     Route: 065
  3. GLIBOMET 400 MG + 5 MG [Suspect]
     Active Substance: GLYBURIDE\METFORMIN
     Indication: DIABETES MELLITUS
     Dosage: 1 DF DAILY
     Route: 048
     Dates: start: 20160101, end: 20161017
  4. ALPRAZOLAM. [Suspect]
     Active Substance: ALPRAZOLAM
     Indication: ANXIETY
     Route: 048
     Dates: start: 20160101, end: 20161018
  5. ZOLOFT 50 MG [Concomitant]
     Indication: DEPRESSION
     Route: 065
  6. CARDIRENE 75 MG [Concomitant]
     Active Substance: ASPIRIN DL-LYSINE
     Indication: PRODUCT USED FOR UNKNOWN INDICATION
     Route: 065

REACTIONS (5)
  - Malaise [Recovered/Resolved]
  - Drug abuse [Recovered/Resolved]
  - Hypoglycaemia [Recovered/Resolved]
  - Sopor [Recovered/Resolved]
  - Asthenia [Recovered/Resolved]

NARRATIVE: CASE EVENT DATE: 20161018
